FAERS Safety Report 19125266 (Version 1)
Quarter: 2021Q2

REPORT INFORMATION
  Report Type: Spontaneous
  Country: DE (occurrence: DE)
  Receive Date: 20210412
  Receipt Date: 20210412
  Transmission Date: 20210717
  Serious: Yes (Other)
  Sender: FDA-Public Use
  Company Number: NVSC2021DE075049

PATIENT
  Age: 90 Year
  Sex: Male

DRUGS (7)
  1. ALLOPURINOL RATIOPHARM [Concomitant]
     Active Substance: ALLOPURINOL
     Indication: GOUT
     Dosage: UNK UNK, QD
     Route: 065
     Dates: start: 202103
  2. FOLSAN [Concomitant]
     Active Substance: FOLIC ACID
     Indication: PRODUCT USED FOR UNKNOWN INDICATION
     Dosage: UNK, QD
     Route: 065
     Dates: start: 202103
  3. BISOPROLOL 5? 1A PHARMA [Suspect]
     Active Substance: BISOPROLOL
     Indication: HYPERTENSION
     Dosage: UNK UNK, QD
     Route: 065
     Dates: start: 202103
  4. RAMIPRIL ? 1 A PHARMA 2,5 MG TABLETTEN [Suspect]
     Active Substance: RAMIPRIL
     Indication: BLOOD PRESSURE INCREASED
     Dosage: UNK UNK, QD
     Route: 065
     Dates: start: 202103
  5. TORASEMID ? 1 A PHARMA 2,5 MG TABLETTEN [Suspect]
     Active Substance: TORSEMIDE
     Indication: URINARY RETENTION
     Dosage: UNK UNK, QD
     Route: 065
     Dates: start: 202103
  6. XARELTO [Concomitant]
     Active Substance: RIVAROXABAN
     Indication: ANTICOAGULANT THERAPY
     Dosage: UNK UNK, QD
     Route: 065
     Dates: start: 202103
  7. DIGITOXIN ^AWD^ [Concomitant]
     Active Substance: DIGITOXIN
     Indication: PRODUCT USED FOR UNKNOWN INDICATION
     Dosage: UNK (0.07 UNITS NOT SPECIFIED)
     Route: 065
     Dates: start: 202103

REACTIONS (6)
  - Balance disorder [Unknown]
  - Dizziness [Unknown]
  - Discomfort [Unknown]
  - Dyspnoea [Unknown]
  - Concomitant disease aggravated [Unknown]
  - Arrhythmia [Unknown]

NARRATIVE: CASE EVENT DATE: 202103
